FAERS Safety Report 9180786 (Version 1)
Quarter: 2013Q1

REPORT INFORMATION
  Report Type: Report from Study
  Country: CA (occurrence: CA)
  Receive Date: 20130322
  Receipt Date: 20130322
  Transmission Date: 20140127
  Serious: Yes (Other)
  Sender: FDA-Public Use
  Company Number: CA-JNJFOC-20130306164

PATIENT
  Sex: Female
  Weight: 98.6 kg

DRUGS (10)
  1. REMICADE [Suspect]
     Indication: COLITIS ULCERATIVE
     Route: 042
     Dates: start: 20110829, end: 20130311
  2. CODEINE [Concomitant]
     Dosage: AS NECESSARY
     Route: 065
  3. ALENDRONATE [Concomitant]
     Route: 065
  4. NORTRIPTYLINE [Concomitant]
     Route: 065
  5. PURINETHOL [Concomitant]
     Dosage: 2.5 TABLETS
     Route: 065
  6. CALCIUM [Concomitant]
     Dosage: 2 CAPSULES
     Route: 065
  7. VITAMIN D [Concomitant]
     Route: 065
  8. PANTOPRAZOLE [Concomitant]
     Dosage: 2 TABLETS
     Route: 065
  9. PREDNISONE [Concomitant]
     Dosage: 4 TABLETS
     Route: 065
  10. MEZAVANT [Concomitant]
     Dosage: 4 TABLETS
     Route: 065

REACTIONS (1)
  - Intestinal operation [Not Recovered/Not Resolved]
